FAERS Safety Report 9531187 (Version 2)
Quarter: 2014Q1

REPORT INFORMATION
  Report Type: Spontaneous
  Country: US (occurrence: US)
  Receive Date: 20130918
  Receipt Date: 20140120
  Transmission Date: 20141002
  Serious: No
  Sender: FDA-Public Use
  Company Number: US-B.I. PHARMACEUTICALS,INC./RIDGEFIELD-2013-BI-28107BP

PATIENT
  Age: 80 Year
  Sex: Male
  Weight: 113 kg

DRUGS (3)
  1. COMBIVENT [Suspect]
     Indication: ASTHMA
     Dosage: STRENGTH: 20 MCG / 100 MCG;
     Route: 055
     Dates: start: 201307
  2. PROAIR [Concomitant]
     Indication: ASTHMA
     Route: 055
  3. ADVAIR [Concomitant]
     Indication: ASTHMA
     Dosage: STRENGTH: 500/50; DAILY DOSE: 500/50
     Route: 055

REACTIONS (3)
  - Off label use [Not Recovered/Not Resolved]
  - Product quality issue [Not Recovered/Not Resolved]
  - Product quality issue [Not Recovered/Not Resolved]
